FAERS Safety Report 9737212 (Version 1)
Quarter: 2013Q4

REPORT INFORMATION
  Report Type: Spontaneous
  Country: GB (occurrence: GB)
  Receive Date: 20131206
  Receipt Date: 20131206
  Transmission Date: 20140711
  Serious: Yes (Disabling, Other)
  Sender: FDA-Public Use
  Company Number: GB-WATSON-2013-22350

PATIENT
  Age: 32 Year
  Sex: Male
  Weight: 90 kg

DRUGS (1)
  1. CITALOPRAM (UNKNOWN) [Suspect]
     Indication: PANIC DISORDER
     Dosage: 20 MG, UNK
     Route: 048
     Dates: start: 200407, end: 201211

REACTIONS (3)
  - Emotional distress [Not Recovered/Not Resolved]
  - Tic [Not Recovered/Not Resolved]
  - Pain [Not Recovered/Not Resolved]
